FAERS Safety Report 5646758-5 (Version None)
Quarter: 2008Q1

REPORT INFORMATION
  Report Type: 
  Country: None (occurrence: None)
  Receive Date: 20080303
  Receipt Date: 20080221
  Transmission Date: 20080703
  Serious: Yes (Hospitalization)
  Sender: FDA-Public Use
  Company Number: FR-ROCHE-548968

PATIENT
  Age: 81 Year
  Sex: Female

DRUGS (8)
  1. RIVOTRIL [Suspect]
     Indication: DRUG USE FOR UNKNOWN INDICATION
     Route: 048
     Dates: start: 20071030, end: 20071203
  2. PROTELOS [Suspect]
     Indication: DRUG USE FOR UNKNOWN INDICATION
     Route: 048
     Dates: start: 20071112, end: 20071130
  3. CONTRAMAL [Suspect]
     Indication: DRUG USE FOR UNKNOWN INDICATION
     Route: 048
     Dates: start: 20071030, end: 20071203
  4. INIPOMP [Suspect]
     Indication: DRUG USE FOR UNKNOWN INDICATION
     Route: 048
     Dates: start: 20071030, end: 20071203
  5. ATHYMIL [Suspect]
     Indication: DRUG USE FOR UNKNOWN INDICATION
     Route: 048
     Dates: start: 20071030, end: 20071203
  6. LEXOMIL [Concomitant]
     Dosage: DOSAGE: 1/2 DOSE IN THE EVENING
     Dates: start: 20071030
  7. CORTANCYL [Concomitant]
  8. CORTANCYL [Concomitant]
     Dates: start: 20071112

REACTIONS (1)
  - LIVER FUNCTION TEST ABNORMAL [None]
